FAERS Safety Report 19129879 (Version 1)
Quarter: 2021Q2

REPORT INFORMATION
  Report Type: Report from Study
  Country: None (occurrence: US)
  Receive Date: 20210414
  Receipt Date: 20210414
  Transmission Date: 20210717
  Serious: Yes (Hospitalization)
  Sender: FDA-Public Use
  Company Number: US-ABBVIE-21K-163-3729104-00

PATIENT
  Age: 46 Year
  Sex: Female

DRUGS (3)
  1. HUMIRA [Suspect]
     Active Substance: ADALIMUMAB
     Route: 058
     Dates: start: 202101
  2. HUMIRA [Suspect]
     Active Substance: ADALIMUMAB
     Dosage: DAY 8
     Route: 058
     Dates: start: 20210108, end: 20210108
  3. HUMIRA [Suspect]
     Active Substance: ADALIMUMAB
     Indication: PSORIASIS
     Dosage: DAY 1
     Route: 058
     Dates: start: 20210102, end: 20210102

REACTIONS (10)
  - Injection site bruising [Unknown]
  - Psychotic disorder [Unknown]
  - Stress [Unknown]
  - Pain [Not Recovered/Not Resolved]
  - Alopecia [Recovering/Resolving]
  - Arthralgia [Recovered/Resolved]
  - Ear discomfort [Unknown]
  - Psoriasis [Recovering/Resolving]
  - Bipolar disorder [Unknown]
  - Mania [Unknown]

NARRATIVE: CASE EVENT DATE: 2021
